FAERS Safety Report 11046451 (Version 1)
Quarter: 2015Q2

REPORT INFORMATION
  Report Type: Report from Study
  Country: US (occurrence: US)
  Receive Date: 20150420
  Receipt Date: 20150420
  Transmission Date: 20150821
  Serious: Yes (Death)
  Sender: FDA-Public Use
  Company Number: US-ROCHE-GNE317725

PATIENT
  Age: 60 Year
  Sex: Male
  Weight: 86.09 kg

DRUGS (8)
  1. GLIBENCLAMIDE [Concomitant]
     Active Substance: GLYBURIDE
     Indication: DIABETES MELLITUS
     Dosage: UNK
     Route: 065
     Dates: start: 2005
  2. ZYMAXID [Concomitant]
     Active Substance: GATIFLOXACIN
     Indication: VITRECTOMY
     Dosage: UNK
     Route: 065
     Dates: start: 20101222
  3. RANIBIZUMAB [Suspect]
     Active Substance: RANIBIZUMAB
     Indication: MACULAR OEDEMA
     Route: 050
     Dates: start: 20080213
  4. TOBREX [Concomitant]
     Active Substance: TOBRAMYCIN
     Indication: CORNEAL ABRASION
     Dosage: UNK
     Route: 065
     Dates: start: 20110103
  5. RANIBIZUMAB [Suspect]
     Active Substance: RANIBIZUMAB
     Indication: MACULAR OEDEMA
     Dosage: 0.05 ML, 1/MONTH
     Route: 050
     Dates: start: 20100308, end: 20110103
  6. RANIBIZUMAB [Suspect]
     Active Substance: RANIBIZUMAB
     Dosage: UNK
     Route: 050
     Dates: end: 20110426
  7. FUROSEMIDE. [Concomitant]
     Active Substance: FUROSEMIDE
     Indication: HYPERTENSION
     Dosage: UNK
     Route: 065
     Dates: start: 200711
  8. PRED FORTE [Concomitant]
     Active Substance: PREDNISOLONE ACETATE
     Indication: VITRECTOMY
     Dosage: UNK
     Route: 065
     Dates: start: 20101222

REACTIONS (1)
  - Arteriosclerosis [Fatal]

NARRATIVE: CASE EVENT DATE: 20110425
